FAERS Safety Report 23625105 (Version 1)
Quarter: 2024Q1

REPORT INFORMATION
  Report Type: Spontaneous
  Country: KR (occurrence: KR)
  Receive Date: 20240313
  Receipt Date: 20240313
  Transmission Date: 20240410
  Serious: Yes (Death, Other)
  Sender: FDA-Public Use
  Company Number: KR-IPSEN Group, Research and Development-2024-03710

PATIENT
  Sex: Female

DRUGS (4)
  1. CABOMETYX [Suspect]
     Active Substance: CABOZANTINIB S-MALATE
     Indication: Chronic kidney disease
     Dosage: 60 MG, QD (THE MEDICATION WAS TAKEN FOR 3 MONTHS FROM BEFORE THE DATE OF DEATH)
     Route: 048
  2. CABOMETYX [Suspect]
     Active Substance: CABOZANTINIB S-MALATE
     Indication: Renal cancer
  3. PANTOPRAZOLE SODIUM [Concomitant]
     Active Substance: PANTOPRAZOLE SODIUM
     Indication: Abdominal discomfort
     Dosage: 20 MG
  4. Feroba you sr [Concomitant]
     Indication: Anaemia
     Dosage: UNK

REACTIONS (1)
  - Neoplasm malignant [Fatal]
